FAERS Safety Report 9137181 (Version 1)
Quarter: 2013Q1

REPORT INFORMATION
  Report Type: Spontaneous
  Country: US (occurrence: US)
  Receive Date: 20130219
  Receipt Date: 20130219
  Transmission Date: 20140127
  Serious: No
  Sender: FDA-Public Use
  Company Number: US-BRISTOL-MYERS SQUIBB COMPANY-17138009

PATIENT
  Age: 59 Year
  Sex: Female

DRUGS (13)
  1. ORENCIA [Suspect]
     Indication: RHEUMATOID ARTHRITIS
     Route: 058
     Dates: start: 201210
  2. AMBIEN [Concomitant]
  3. CYMBALTA [Concomitant]
  4. FISH OIL [Concomitant]
  5. HYDROCHLOROTHIAZIDE [Concomitant]
  6. KLONOPIN [Concomitant]
  7. LISINOPRIL [Concomitant]
  8. LYRICA [Concomitant]
  9. MULTIVITAMIN [Concomitant]
  10. PLAQUENIL [Concomitant]
  11. PREMPRO [Concomitant]
  12. VITAMIN B COMPLEX [Concomitant]
  13. VITAMIN D [Concomitant]

REACTIONS (2)
  - Injection site vesicles [Unknown]
  - Injection site pruritus [Unknown]
